FAERS Safety Report 18650119 (Version 1)
Quarter: 2020Q4

REPORT INFORMATION
  Report Type: Spontaneous
  Country: US (occurrence: US)
  Receive Date: 20201222
  Receipt Date: 20201222
  Transmission Date: 20210114
  Serious: Yes (Hospitalization)
  Sender: FDA-Public Use
  Company Number: NVSC2020US338326

PATIENT
  Age: 44 Year
  Sex: Male

DRUGS (2)
  1. OXALIPLATIN. [Suspect]
     Active Substance: OXALIPLATIN
     Indication: COLON CANCER METASTATIC
     Dosage: UNK
     Route: 065
  2. PANITUMUMAB [Suspect]
     Active Substance: PANITUMUMAB
     Indication: COLON CANCER METASTATIC
     Dosage: UNK
     Route: 065

REACTIONS (7)
  - Varices oesophageal [Unknown]
  - Hepatic lesion [Unknown]
  - Haemoglobin decreased [Unknown]
  - Melaena [Unknown]
  - Pseudocirrhosis [Unknown]
  - Hypertension [Unknown]
  - Disease progression [Unknown]
